FAERS Safety Report 16647040 (Version 1)
Quarter: 2019Q3

REPORT INFORMATION
  Report Type: Spontaneous
  Country: US (occurrence: US)
  Receive Date: 20190730
  Receipt Date: 20190730
  Transmission Date: 20191004
  Serious: Yes (Hospitalization, Other)
  Sender: FDA-Public Use
  Company Number: US-ACORDA-ACO_160055_2019

PATIENT
  Age: 65 Year
  Sex: Female
  Weight: 86.26 kg

DRUGS (7)
  1. TYSABRI [Suspect]
     Active Substance: NATALIZUMAB
     Dosage: INFUSED OVER 1 HOUR, 300 MG MONTHLY
     Route: 042
     Dates: end: 20190314
  2. OXYBUTYNIN. [Concomitant]
     Active Substance: OXYBUTYNIN CHLORIDE
     Indication: PRODUCT USED FOR UNKNOWN INDICATION
     Dosage: 5MG TAB, 2 TABS BID
     Route: 048
  3. TRAMADOL. [Concomitant]
     Active Substance: TRAMADOL
     Indication: PRODUCT USED FOR UNKNOWN INDICATION
     Dosage: 50 MG, Q 8 HRS
     Route: 048
  4. LORATIDINE [Concomitant]
     Active Substance: LORATADINE
     Indication: PRODUCT USED FOR UNKNOWN INDICATION
     Dosage: 10 MG, QD
     Route: 048
  5. LUTEIN [Concomitant]
     Active Substance: LUTEIN
     Indication: PRODUCT USED FOR UNKNOWN INDICATION
     Dosage: 20 MG, QD
     Route: 048
  6. AMPYRA [Suspect]
     Active Substance: DALFAMPRIDINE
     Indication: PRODUCT USED FOR UNKNOWN INDICATION
     Dosage: 10 MG, BID
     Route: 048
  7. TYSABRI [Suspect]
     Active Substance: NATALIZUMAB
     Indication: MULTIPLE SCLEROSIS
     Dosage: INFUSED OVER 1 HOUR, 300 MG MONTHLY
     Route: 042
     Dates: start: 20121106, end: 20190312

REACTIONS (11)
  - Pulmonary embolism [Unknown]
  - Hypovitaminosis [Unknown]
  - Increased appetite [Unknown]
  - Asthenia [Unknown]
  - Fall [Recovered/Resolved]
  - Urinary tract infection [Unknown]
  - Deep vein thrombosis [Unknown]
  - Therapy cessation [Unknown]
  - Upper limb fracture [Unknown]
  - Hemiplegia [Unknown]
  - Depression [Unknown]

NARRATIVE: CASE EVENT DATE: 201905
